FAERS Safety Report 4595614-2 (Version None)
Quarter: 2005Q1

REPORT INFORMATION
  Report Type: 
  Country: None (occurrence: None)
  Receive Date: 20050223
  Receipt Date: 20050223
  Transmission Date: 20050727
  Serious: Yes (Hospitalization)
  Sender: FDA-Public Use
  Company Number: None

PATIENT
  Age: 79 Year
  Sex: Male
  Weight: 60.2 kg

DRUGS (2)
  1. THEOPHYLLINE [Suspect]
     Indication: CHRONIC OBSTRUCTIVE PULMONARY DISEASE
     Dosage: 300 MG DAILY/ 10 YEARS TAKEN/D/C'D 11/29/2004
  2. CIPROFLOXACIN [Suspect]
     Indication: CLOSTRIDIAL INFECTION
     Dosage: 250 MG BID

REACTIONS (5)
  - CLOSTRIDIAL INFECTION [None]
  - DIARRHOEA [None]
  - DRUG TOXICITY [None]
  - NAUSEA [None]
  - VOMITING [None]
